FAERS Safety Report 16545027 (Version 1)
Quarter: 2019Q3

REPORT INFORMATION
  Report Type: Spontaneous
  Country: US (occurrence: US)
  Receive Date: 20190708
  Receipt Date: 20190708
  Transmission Date: 20191004
  Serious: Yes (Death)
  Sender: FDA-Public Use
  Company Number: None

PATIENT
  Age: 41 Year
  Sex: Female

DRUGS (4)
  1. METHOTREXATE 2.5 MG [Concomitant]
     Active Substance: METHOTREXATE
     Dates: start: 20190219
  2. FOLIC ACID. [Concomitant]
     Active Substance: FOLIC ACID
     Dates: start: 20190219
  3. HUMIRA [Suspect]
     Active Substance: ADALIMUMAB
     Indication: PSORIASIS
     Dosage: ?          OTHER FREQUENCY:EVERY OTHER WEEK;?
     Route: 058
     Dates: start: 20171010, end: 20190706
  4. HALOBETASOL OIN 0.05% [Concomitant]
     Dates: start: 20181211

REACTIONS (1)
  - Death [None]

NARRATIVE: CASE EVENT DATE: 20190706
